FAERS Safety Report 16031235 (Version 2)
Quarter: 2019Q1

REPORT INFORMATION
  Report Type: Report from Study
  Country: RU (occurrence: RU)
  Receive Date: 20190304
  Receipt Date: 20190312
  Transmission Date: 20190418
  Serious: Yes (Life-Threatening, Other)
  Sender: FDA-Public Use
  Company Number: RU-PFIZER INC-2019082020

PATIENT
  Age: 44 Year
  Sex: Male
  Weight: 84 kg

DRUGS (27)
  1. SALINE SOLUTION [Concomitant]
     Active Substance: SODIUM CHLORIDE
     Dosage: 4000 ML, CI
     Route: 042
     Dates: start: 20190204
  2. METOCLOPRAMIDE. [Concomitant]
     Active Substance: METOCLOPRAMIDE
     Indication: ANTIEMETIC SUPPORTIVE CARE
     Dosage: 5 MG, 2X/DAY
     Route: 042
     Dates: start: 20190204, end: 20190211
  3. CASPOFUNGIN [Concomitant]
     Active Substance: CASPOFUNGIN
     Dosage: 70 MG, DAILY
     Route: 042
     Dates: start: 20190217, end: 20190222
  4. ACYCLOVIR. [Concomitant]
     Active Substance: ACYCLOVIR
     Indication: ANTIVIRAL PROPHYLAXIS
     Dosage: 400 MG, 2X/DAY
     Route: 048
     Dates: start: 20190128
  5. SALINE SOLUTION [Concomitant]
     Active Substance: SODIUM CHLORIDE
     Indication: PROPHYLAXIS
     Dosage: 1000 MK, CI
     Route: 042
     Dates: start: 20190128, end: 20190204
  6. POTASSIUM CHLORIDE. [Concomitant]
     Active Substance: POTASSIUM CHLORIDE
     Dosage: 4% 30 ML, CI
     Route: 042
     Dates: start: 20190204
  7. MINIRIN [Concomitant]
     Active Substance: DESMOPRESSIN ACETATE
     Dosage: 60 UG, 2X/DAY
     Route: 048
     Dates: start: 20190211, end: 20190217
  8. VANCOMYCIN [Concomitant]
     Active Substance: VANCOMYCIN
     Indication: ANTIBIOTIC THERAPY
     Dosage: 1 G, 2X/DAY
     Route: 042
     Dates: start: 20190210, end: 20190217
  9. CASPOFUNGIN [Concomitant]
     Active Substance: CASPOFUNGIN
     Indication: ANTIFUNGAL TREATMENT
     Dosage: 50 MG, 1X/DAY
     Route: 042
     Dates: start: 20190216, end: 20190217
  10. ZYVOX [Concomitant]
     Active Substance: LINEZOLID
     Indication: ANTIBIOTIC THERAPY
     Dosage: 600 MG, 2X/DAY
     Route: 042
     Dates: start: 20190217, end: 20190219
  11. MINIRIN [Concomitant]
     Active Substance: DESMOPRESSIN ACETATE
     Dosage: 45 UG, 2X/DAY
     Route: 048
     Dates: start: 20190207, end: 20190210
  12. ALLOPURINOL. [Concomitant]
     Active Substance: ALLOPURINOL
     Indication: PROPHYLAXIS
     Dosage: 600 MG, DAILY
     Route: 048
     Dates: start: 20190128
  13. MINIRIN [Concomitant]
     Active Substance: DESMOPRESSIN ACETATE
     Dosage: 30 UG, 2X/DAY
     Route: 048
     Dates: start: 20190217
  14. VANCOMYCIN [Concomitant]
     Active Substance: VANCOMYCIN
     Dosage: 1 UNK, UNK
     Route: 042
     Dates: start: 20190219, end: 20190221
  15. AMIKACIN. [Concomitant]
     Active Substance: AMIKACIN
     Indication: ANTIBIOTIC THERAPY
     Dosage: 1 G, 1X/DAY
     Route: 042
     Dates: start: 20190216, end: 20190227
  16. CYTARABINE. [Suspect]
     Active Substance: CYTARABINE
     Indication: ACUTE MYELOID LEUKAEMIA
     Dosage: 100 MG/M2, CONTINUOUS IV INFUSION 7 DAYS; 7+3
     Route: 042
     Dates: start: 20190204, end: 20190210
  17. MAGNESIUM SULFATE. [Concomitant]
     Active Substance: MAGNESIUM SULFATE
     Dosage: 25% 5 ML, CI
     Route: 042
     Dates: start: 20190204
  18. PLACEBO [Suspect]
     Active Substance: UNSPECIFIED INGREDIENT
     Indication: ACUTE MYELOID LEUKAEMIA
     Dosage: 100 MG, 1X/DAY
     Route: 048
     Dates: start: 20190204, end: 20190305
  19. SULFAMETHOXAZOLE W/TRIMETHOPRIM [Concomitant]
     Active Substance: SULFAMETHOXAZOLE\TRIMETHOPRIM
     Indication: ANTIFUNGAL PROPHYLAXIS
     Dosage: 960 MG, 3X/DAY
     Route: 048
     Dates: start: 20190128
  20. MAGNESIUM SULFATE. [Concomitant]
     Active Substance: MAGNESIUM SULFATE
     Indication: PROPHYLAXIS
     Dosage: 25% 5 ML, CI
     Route: 042
     Dates: start: 20190128, end: 20190204
  21. CEFOPERAZONE/SULBACTAM [Concomitant]
     Indication: ANTIBIOTIC THERAPY
     Dosage: 4 G, 2X/DAY
     Route: 042
     Dates: start: 20190206, end: 20190215
  22. FOSFOMYCIN [Concomitant]
     Active Substance: FOSFOMYCIN
     Indication: ANTIBIOTIC THERAPY
     Dosage: 4 G, 3X/DAY
     Route: 042
     Dates: start: 20190220
  23. OMEPRAZOLE. [Concomitant]
     Active Substance: OMEPRAZOLE
     Indication: GASTRITIS PROPHYLAXIS
     Dosage: 20 MG, 1X/DAY
     Route: 048
     Dates: start: 20190128
  24. POTASSIUM CHLORIDE. [Concomitant]
     Active Substance: POTASSIUM CHLORIDE
     Indication: PROPHYLAXIS
     Dosage: 4% 30 ML, CI
     Route: 042
     Dates: start: 20190128, end: 20190204
  25. DAUNORUBICIN [Suspect]
     Active Substance: DAUNORUBICIN
     Indication: ACUTE MYELOID LEUKAEMIA
     Dosage: 60 MG/M2, 1X/DAY: 7+3
     Route: 042
     Dates: start: 20190204, end: 20190206
  26. MINIRIN [Concomitant]
     Active Substance: DESMOPRESSIN ACETATE
     Indication: HORMONE REPLACEMENT THERAPY
     Dosage: 60 UG, 2X/DAY
     Route: 048
     Dates: start: 20190131, end: 20190207
  27. TIENAM [Concomitant]
     Active Substance: CILASTATIN SODIUM\IMIPENEM
     Indication: ANTIBIOTIC THERAPY
     Dosage: 3 G, 3X/DAY
     Route: 042
     Dates: start: 20190215, end: 20190221

REACTIONS (2)
  - Lung infection [Not Recovered/Not Resolved]
  - Septic shock [Not Recovered/Not Resolved]

NARRATIVE: CASE EVENT DATE: 20190220
